FAERS Safety Report 15567099 (Version 1)
Quarter: 2018Q4

REPORT INFORMATION
  Report Type: Spontaneous
  Country: US (occurrence: US)
  Receive Date: 20181030
  Receipt Date: 20181030
  Transmission Date: 20190205
  Serious: Yes (Other)
  Sender: FDA-Public Use
  Company Number: US-AKORN PHARMACEUTICALS-2018AKN01432

PATIENT
  Sex: Female
  Weight: 60.77 kg

DRUGS (6)
  1. ACYCLOVIR. [Concomitant]
     Active Substance: ACYCLOVIR
  2. FLUOROMETHOLONE. [Concomitant]
     Active Substance: FLUOROMETHOLONE
  3. TRI-LINYAH [Concomitant]
     Active Substance: ETHINYL ESTRADIOL\NORGESTIMATE
     Route: 048
  4. MYORISAN [Suspect]
     Active Substance: ISOTRETINOIN
     Dosage: 30 MG, 1X/DAY, AT PM
     Dates: start: 20180503, end: 20180810
  5. CLARAVIS [Suspect]
     Active Substance: ISOTRETINOIN
     Indication: ACNE
     Dosage: 20 MG, 1X/DAY, IN AM
     Dates: start: 20180530, end: 20180810
  6. PREDNISOLONE ACETATE. [Concomitant]
     Active Substance: PREDNISOLONE ACETATE

REACTIONS (2)
  - Ophthalmic herpes simplex [Recovered/Resolved]
  - Swelling of eyelid [Recovered/Resolved]

NARRATIVE: CASE EVENT DATE: 2018
